FAERS Safety Report 22055966 (Version 2)
Quarter: 2023Q1

REPORT INFORMATION
  Report Type: Spontaneous
  Country: US (occurrence: US)
  Receive Date: 20230302
  Receipt Date: 20230306
  Transmission Date: 20230418
  Serious: Yes (Hospitalization)
  Sender: FDA-Public Use
  Company Number: US-KARYOPHARM-2023KPT000492

PATIENT

DRUGS (26)
  1. XPOVIO [Suspect]
     Active Substance: SELINEXOR
     Indication: Plasma cell myeloma
     Dosage: 50 MG, WEEKLY
     Route: 048
     Dates: start: 20230108
  2. XPOVIO [Suspect]
     Active Substance: SELINEXOR
     Dosage: 60 MG, WEEKLY
     Route: 048
     Dates: end: 20230214
  3. ACYCLOVIR [Concomitant]
     Active Substance: ACYCLOVIR
  4. ALBUTEROL SULFATE [Concomitant]
     Active Substance: ALBUTEROL SULFATE
  5. AMOXICILLIN [Concomitant]
     Active Substance: AMOXICILLIN
  6. APREPITANT [Concomitant]
     Active Substance: APREPITANT
  7. ATORVASTATIN [Concomitant]
     Active Substance: ATORVASTATIN
  8. BUMETANIDE [Concomitant]
     Active Substance: BUMETANIDE
  9. CHLORHEXIDINE GLUCONATE [Concomitant]
     Active Substance: CHLORHEXIDINE GLUCONATE
  10. CLOPIDOGREL BISULFATE [Concomitant]
     Active Substance: CLOPIDOGREL BISULFATE
  11. CYCLOBENZAPRINE [Concomitant]
     Active Substance: CYCLOBENZAPRINE
  12. DEXAMETHASONE [Concomitant]
     Active Substance: DEXAMETHASONE
  13. ELIQUIS [Concomitant]
     Active Substance: APIXABAN
  14. GABAPENTIN [Concomitant]
     Active Substance: GABAPENTIN
  15. HUMALOG [Concomitant]
     Active Substance: INSULIN LISPRO
  16. LANSOPRAZOLE [Concomitant]
     Active Substance: LANSOPRAZOLE
  17. LEVEMIR [Concomitant]
     Active Substance: INSULIN DETEMIR
  18. LEVOFLOXACIN [Concomitant]
     Active Substance: LEVOFLOXACIN
  19. LIDOCAINE HYDROCHLORIDE [Concomitant]
     Active Substance: LIDOCAINE HYDROCHLORIDE
  20. METOPROLOL TARTRATE [Concomitant]
     Active Substance: METOPROLOL TARTRATE
  21. ONDANSETRON [Concomitant]
     Active Substance: ONDANSETRON
  22. OXYCODONE [Concomitant]
     Active Substance: OXYCODONE
  23. PAROXETINE [Concomitant]
     Active Substance: PAROXETINE
  24. POMALYST [Concomitant]
     Active Substance: POMALIDOMIDE
  25. SILDENAFIL CITRATE [Concomitant]
     Active Substance: SILDENAFIL CITRATE
  26. TRIAMCINOLONE ACETONIDE [Concomitant]
     Active Substance: TRIAMCINOLONE ACETONIDE

REACTIONS (4)
  - Body temperature increased [Unknown]
  - White blood cell count decreased [Unknown]
  - Protein urine present [Unknown]
  - Platelet count decreased [Not Recovered/Not Resolved]

NARRATIVE: CASE EVENT DATE: 20230124
